FAERS Safety Report 9450710 (Version 1)
Quarter: 2013Q3

REPORT INFORMATION
  Report Type: Report from Study
  Country: US (occurrence: US)
  Receive Date: 20130809
  Receipt Date: 20130809
  Transmission Date: 20140515
  Serious: Yes (Hospitalization, Other)
  Sender: FDA-Public Use
  Company Number: US-ABBOTT-13P-163-1128808-00

PATIENT
  Age: 51 Year
  Sex: Male

DRUGS (5)
  1. HUMIRA [Suspect]
     Indication: CROHN^S DISEASE
     Dates: end: 2011
  2. HUMIRA [Suspect]
     Dosage: LOADING DOSE
     Dates: start: 201305
  3. HUMIRA [Suspect]
  4. HUMIRA [Suspect]
     Dosage: LOADING DOSE
     Dates: start: 20130614
  5. HUMIRA [Suspect]

REACTIONS (9)
  - Asthenia [Not Recovered/Not Resolved]
  - Haemorrhage [Unknown]
  - Pain [Unknown]
  - Weight decreased [Unknown]
  - Fistula [Unknown]
  - Diarrhoea haemorrhagic [Unknown]
  - Muscle spasms [Unknown]
  - Joint lock [Unknown]
  - Crohn^s disease [Unknown]
